FAERS Safety Report 22399353 (Version 1)
Quarter: 2023Q2

REPORT INFORMATION
  Report Type: Spontaneous
  Country: RO (occurrence: RO)
  Receive Date: 20230602
  Receipt Date: 20230602
  Transmission Date: 20230721
  Serious: Yes (Other)
  Sender: FDA-Public Use
  Company Number: RO-SUN PHARMACEUTICAL INDUSTRIES LTD-2023RR-391773

PATIENT
  Age: 13 Year
  Sex: Female

DRUGS (5)
  1. METOPROLOL [Suspect]
     Active Substance: METOPROLOL
     Indication: Junctional ectopic tachycardia
     Dosage: 10 MILLIGRAM, UNK
     Route: 042
  2. METOPROLOL [Suspect]
     Active Substance: METOPROLOL
     Dosage: 100 MILLIGRAM, UNK
     Route: 048
  3. IVABRADINE [Suspect]
     Active Substance: IVABRADINE
     Indication: Junctional ectopic tachycardia
     Dosage: 10 MILLIGRAM, UNK
     Route: 048
  4. AMIODARONE [Suspect]
     Active Substance: AMIODARONE
     Indication: Junctional ectopic tachycardia
     Dosage: 300 MILLIGRAM, UNK
     Route: 042
  5. PROPAFENONE [Suspect]
     Active Substance: PROPAFENONE
     Indication: Junctional ectopic tachycardia
     Dosage: 140 MILLIGRAM, UNK
     Route: 065

REACTIONS (1)
  - Drug ineffective [Unknown]
